FAERS Safety Report 17416613 (Version 2)
Quarter: 2020Q1

REPORT INFORMATION
  Report Type: Spontaneous
  Country: AU (occurrence: AU)
  Receive Date: 20200213
  Receipt Date: 20200220
  Transmission Date: 20200409
  Serious: Yes (Other)
  Sender: FDA-Public Use
  Company Number: AU-GE HEALTHCARE LIFE SCIENCES-2020CSU000628

PATIENT

DRUGS (4)
  1. VENTOLIN [Concomitant]
     Active Substance: ALBUTEROL SULFATE
     Dosage: UNK, PRN
  2. OROXINE [Concomitant]
     Active Substance: LEVOTHYROXINE SODIUM
  3. OMNIPAQUE [Suspect]
     Active Substance: IOHEXOL
     Indication: VENOGRAM
     Dosage: 100 ML, SINGLE
     Route: 042
     Dates: start: 20200204, end: 20200204
  4. OMNIPAQUE [Suspect]
     Active Substance: IOHEXOL
     Indication: VARICOSE VEIN
     Dosage: 40 ML, SINGLE
     Route: 042
     Dates: start: 20200204, end: 20200204

REACTIONS (4)
  - Nasal congestion [Recovered/Resolved]
  - Throat clearing [Recovered/Resolved]
  - Urticaria [Recovered/Resolved]
  - Cough [Recovered/Resolved]

NARRATIVE: CASE EVENT DATE: 20200204
